FAERS Safety Report 24121725 (Version 3)
Quarter: 2024Q3

REPORT INFORMATION
  Report Type: Spontaneous
  Country: GR (occurrence: GR)
  Receive Date: 20240722
  Receipt Date: 20240917
  Transmission Date: 20241016
  Serious: No
  Sender: PFIZER
  Company Number: GR-PFIZER INC-PV202400093743

PATIENT
  Age: 5 Year
  Sex: Male
  Weight: 14.3 kg

DRUGS (1)
  1. GENOTROPIN [Suspect]
     Active Substance: SOMATROPIN
     Indication: Dwarfism
     Dosage: 3 MG, WEEKLY
     Route: 058
     Dates: start: 20240609

REACTIONS (2)
  - Device breakage [Not Recovered/Not Resolved]
  - Poor quality device used [Not Recovered/Not Resolved]

NARRATIVE: CASE EVENT DATE: 20240714
